FAERS Safety Report 9139774 (Version 2)
Quarter: 2013Q2

REPORT INFORMATION
  Report Type: Report from Study
  Country: JP (occurrence: JP)
  Receive Date: 20130305
  Receipt Date: 20130403
  Transmission Date: 20140414
  Serious: Yes (Other)
  Sender: FDA-Public Use
  Company Number: JP-JNJFOC-20130215558

PATIENT
  Age: 53 Year
  Sex: Female
  Weight: 53 kg

DRUGS (9)
  1. STELARA [Suspect]
     Indication: PSORIASIS
     Route: 058
     Dates: start: 20120319
  2. STELARA [Suspect]
     Indication: PSORIASIS
     Route: 058
     Dates: start: 20120220
  3. STELARA [Suspect]
     Indication: PSORIASIS
     Route: 058
     Dates: start: 20120827
  4. STELARA [Suspect]
     Indication: PSORIASIS
     Route: 058
     Dates: start: 20121126
  5. STELARA [Suspect]
     Indication: PSORIASIS
     Route: 058
     Dates: start: 20130218
  6. STELARA [Suspect]
     Indication: PSORIASIS
     Route: 058
     Dates: start: 20120604
  7. METGLUCO [Concomitant]
     Indication: DIABETES MELLITUS
     Route: 048
  8. DOVONEX [Concomitant]
     Indication: PSORIASIS
     Route: 061
     Dates: start: 20090226
  9. DERMOVATE [Concomitant]
     Indication: PSORIASIS
     Route: 061

REACTIONS (1)
  - Thyroiditis subacute [Recovered/Resolved]
